FAERS Safety Report 9412174 (Version 1)
Quarter: 2013Q3

REPORT INFORMATION
  Report Type: Spontaneous
  Country: US (occurrence: None)
  Receive Date: 20130719
  Receipt Date: 20130719
  Transmission Date: 20140515
  Serious: No
  Sender: FDA-Public Use
  Company Number: None

PATIENT
  Age: 70 Year
  Sex: Female

DRUGS (1)
  1. ESTRADIOL TRANSDERMAL PATCH [Suspect]
     Route: 062
     Dates: start: 20130528, end: 20130706

REACTIONS (2)
  - Product substitution issue [None]
  - Product quality issue [None]
